FAERS Safety Report 23326191 (Version 3)
Quarter: 2024Q2

REPORT INFORMATION
  Report Type: Spontaneous
  Country: GB (occurrence: GB)
  Receive Date: 20231221
  Receipt Date: 20240520
  Transmission Date: 20240716
  Serious: Yes (Hospitalization, Other)
  Sender: FDA-Public Use
  Company Number: GB-MYLANLABS-2023M1125172

PATIENT
  Age: 34 Year
  Sex: Male

DRUGS (2)
  1. CLOZARIL [Suspect]
     Active Substance: CLOZAPINE
     Indication: Schizophrenia
     Dosage: UNK
     Route: 048
     Dates: start: 20190819
  2. CLOZARIL [Suspect]
     Active Substance: CLOZAPINE
     Dosage: UNK(LAST DOSE ESTIMATED DATE:30-MAR-2024)
     Route: 048
     Dates: end: 202403

REACTIONS (5)
  - Schizophrenia [Unknown]
  - Alcohol abuse [Unknown]
  - Malaise [Unknown]
  - Adverse drug reaction [Unknown]
  - Therapy interrupted [Unknown]
